FAERS Safety Report 10029825 (Version 1)
Quarter: 2014Q1

REPORT INFORMATION
  Report Type: Spontaneous
  Country: US (occurrence: None)
  Receive Date: 20140320
  Receipt Date: 20140320
  Transmission Date: 20141002
  Serious: Yes (Hospitalization, Other)
  Sender: FDA-Public Use
  Company Number: UTC-044831

PATIENT
  Age: 79 Year
  Sex: Male
  Weight: 64.41 kg

DRUGS (1)
  1. TYVASO (0.6 MILLIGRAM/MILLILITERS, AEROSOL FOR INHALATION) (TREPROSTINIL SODIUM) [Suspect]
     Indication: COR PULMONALE CHRONIC
     Route: 055
     Dates: start: 20130610

REACTIONS (3)
  - Thrombosis [None]
  - Stent placement [None]
  - Transfusion [None]
